FAERS Safety Report 7824212-X (Version None)
Quarter: 2011Q4

REPORT INFORMATION
  Report Type: 
  Country: None (occurrence: None)
  Receive Date: 20111019
  Receipt Date: 20111014
  Transmission Date: 20120403
  Serious: Yes (Hospitalization, Congenital Anomaly, Other)
  Sender: FDA-Public Use
  Company Number: US-PFIZER INC-2011177254

PATIENT
  Sex: Male
  Weight: 3.7 kg

DRUGS (7)
  1. SERTRALINE HYDROCHLORIDE [Suspect]
     Dosage: 50 MG, HALF TABLET EVERY MORNING FOR 7 DAYS THEN ONE TABLET EVERY MORNING
     Route: 064
     Dates: start: 20080812
  2. SERTRALINE HYDROCHLORIDE [Suspect]
     Dosage: 100 MG, DAILY
     Route: 064
     Dates: start: 20080827
  3. SERTRALINE HYDROCHLORIDE [Suspect]
     Dosage: 100 MG, UNK
     Route: 064
     Dates: start: 20081028
  4. SERTRALINE HYDROCHLORIDE [Suspect]
     Dosage: 100 MG, DAILY
     Route: 064
     Dates: start: 20090322
  5. SERTRALINE HYDROCHLORIDE [Suspect]
     Dosage: 100 MG, HALF TABLET EVERY MORNING
     Route: 064
     Dates: start: 20081008
  6. ZOLOFT [Suspect]
     Indication: DEPRESSION
     Dosage: 150 MG, DAILY
     Route: 064
     Dates: start: 20080813, end: 20090323
  7. SERTRALINE HYDROCHLORIDE [Suspect]
     Dosage: 100 MG,1 AND HALF TABLET ONCE DAILY EVERY MORNING
     Route: 064
     Dates: start: 20081106

REACTIONS (3)
  - MATERNAL EXPOSURE DURING PREGNANCY [None]
  - CONJUNCTIVITIS [None]
  - CRANIOSYNOSTOSIS [None]
